FAERS Safety Report 19200703 (Version 1)
Quarter: 2021Q2

REPORT INFORMATION
  Report Type: Spontaneous
  Country: US (occurrence: US)
  Receive Date: 20210429
  Receipt Date: 20210429
  Transmission Date: 20210717
  Serious: Yes (Other)
  Sender: FDA-Public Use
  Company Number: None

PATIENT

DRUGS (1)
  1. OPTIRAY 320 [Suspect]
     Active Substance: IOVERSOL

REACTIONS (1)
  - Erythema [None]

NARRATIVE: CASE EVENT DATE: 20210401
